FAERS Safety Report 6355443-6 (Version None)
Quarter: 2009Q3

REPORT INFORMATION
  Report Type: 
  Country: None (occurrence: None)
  Receive Date: 20090914
  Receipt Date: 20090903
  Transmission Date: 20100115
  Serious: Yes (Hospitalization, Other)
  Sender: FDA-Public Use
  Company Number: PHHY2009CA37728

PATIENT
  Sex: Female

DRUGS (10)
  1. DIOVAN [Suspect]
     Dosage: 1 TABLET (160 MG) DAILY
     Route: 048
  2. NORVASC [Concomitant]
     Dosage: 10 MG
  3. CITALOPRAM HYDROBROMIDE [Concomitant]
     Dosage: HALF TABLET A DAY
  4. EZETROL [Concomitant]
     Dosage: 10 MG
  5. SYNTHROID [Concomitant]
     Dosage: 0.075 MG
  6. APO-DOXAZOSIN [Concomitant]
     Dosage: 1 MG
  7. LIPITOR [Concomitant]
     Dosage: 10 MG
  8. LIPITOR [Concomitant]
     Dosage: UNK
  9. ASPIRIN [Concomitant]
     Dosage: 81 MG
  10. ZOPICLONE [Concomitant]
     Dosage: 7.5 MG

REACTIONS (3)
  - INFECTION [None]
  - MYOCARDIAL INFARCTION [None]
  - NEPHROLITHIASIS [None]
